FAERS Safety Report 9300026 (Version 2)
Quarter: 2013Q1

REPORT INFORMATION
  Report Type: Spontaneous
  Country: US (occurrence: None)
  Receive Date: 20121227
  Receipt Date: 20121227
  Transmission Date: 20140127
  Serious: Yes (Hospitalization)
  Sender: FDA-Public Use
  Company Number: PHEH2011US011714

PATIENT
  Sex: 0

DRUGS (1)
  1. CLOZARIL (CLOZAPINE) UNKNOWN [Suspect]

REACTIONS (3)
  - Malaise [None]
  - Dizziness [None]
  - White blood cell count increased [None]
